FAERS Safety Report 7787208-2 (Version None)
Quarter: 2011Q3

REPORT INFORMATION
  Report Type: 
  Country: None (occurrence: None)
  Receive Date: 20110929
  Receipt Date: 20110922
  Transmission Date: 20111222
  Serious: Yes (Other)
  Sender: FDA-Public Use
  Company Number: US-BAYER-2011-090990

PATIENT
  Age: 63 Year
  Sex: Male
  Weight: 98 kg

DRUGS (3)
  1. ALEVE (CAPLET) [Suspect]
     Dosage: 2 DF, QD
     Route: 048
     Dates: start: 20110919, end: 20110919
  2. COPD INHALER [Concomitant]
  3. ALEVE (CAPLET) [Suspect]
     Indication: ARTHRITIS
     Dosage: 1 UNK, UNK
     Route: 048
     Dates: start: 20110811, end: 20110811

REACTIONS (8)
  - LIP SWELLING [None]
  - ERYTHEMA [None]
  - SWELLING FACE [None]
  - DYSPHAGIA [None]
  - SWOLLEN TONGUE [None]
  - ANAPHYLACTIC SHOCK [None]
  - DYSPNOEA [None]
  - BLOOD PRESSURE DECREASED [None]
